FAERS Safety Report 4787368-1 (Version None)
Quarter: 2005Q4

REPORT INFORMATION
  Report Type: 
  Country: None (occurrence: None)
  Receive Date: 20051003
  Receipt Date: 20050919
  Transmission Date: 20060501
  Serious: Yes (Death, Hospitalization)
  Sender: FDA-Public Use
  Company Number: DSA_70735_2005

PATIENT
  Age: 77 Year
  Sex: Male

DRUGS (2)
  1. ACETAMINOPHEN W/ PROPOXYPHENE HCL [Suspect]
     Dosage: DF PO
     Route: 048
  2. METFORMIN HCL [Suspect]
     Dosage: 1000 MG ONCE PO
     Route: 048

REACTIONS (7)
  - ACIDOSIS [None]
  - BRADYCARDIA [None]
  - HAEMODIALYSIS [None]
  - HYPOTENSION [None]
  - LOSS OF CONSCIOUSNESS [None]
  - OVERDOSE [None]
  - SOMNOLENCE [None]
